FAERS Safety Report 5910329-3 (Version None)
Quarter: 2008Q4

REPORT INFORMATION
  Report Type: 
  Country: None (occurrence: None)
  Receive Date: 20081007
  Receipt Date: 20071130
  Transmission Date: 20090506
  Serious: No
  Sender: FDA-Public Use
  Company Number: US-ASTRAZENECA-2007UW27415

PATIENT
  Age: 73 Year
  Sex: Female
  Weight: 49.9 kg

DRUGS (6)
  1. ARIMIDEX [Suspect]
     Indication: BREAST CANCER
     Route: 048
     Dates: start: 20050901, end: 20071101
  2. ACTONEL [Concomitant]
  3. BORON [Concomitant]
  4. STRONTIUM [Concomitant]
  5. SILICA [Concomitant]
  6. CALCIUM/MAGNESIUM/VITAMIN D3 [Concomitant]

REACTIONS (3)
  - CHEST PAIN [None]
  - DYSPNOEA [None]
  - MUSCULAR WEAKNESS [None]
